FAERS Safety Report 6834331-2 (Version None)
Quarter: 2010Q3

REPORT INFORMATION
  Report Type: 
  Country: None (occurrence: None)
  Receive Date: 20100712
  Receipt Date: 20070614
  Transmission Date: 20110219
  Serious: No
  Sender: FDA-Public Use
  Company Number: US-PFIZER INC-2007030264

PATIENT
  Sex: Male
  Weight: 95.3 kg

DRUGS (5)
  1. CHANTIX [Suspect]
     Indication: SMOKING CESSATION THERAPY
     Dates: start: 20070228, end: 20070401
  2. CHANTIX [Suspect]
     Indication: NICOTINE DEPENDENCE
  3. MONTELUKAST SODIUM [Concomitant]
  4. ALBUTEROL [Concomitant]
     Route: 055
  5. SIMVASTATIN [Concomitant]

REACTIONS (9)
  - AMNESIA [None]
  - DECREASED APPETITE [None]
  - DIARRHOEA [None]
  - DISTURBANCE IN ATTENTION [None]
  - FEELING ABNORMAL [None]
  - HEADACHE [None]
  - MALAISE [None]
  - MYALGIA [None]
  - NAUSEA [None]
